FAERS Safety Report 8449838-4 (Version None)
Quarter: 2012Q2

REPORT INFORMATION
  Report Type: 
  Country: None (occurrence: None)
  Receive Date: 20120620
  Receipt Date: 20120611
  Transmission Date: 20120825
  Serious: Yes (Other)
  Sender: FDA-Public Use
  Company Number: DE-ELI_LILLY_AND_COMPANY-DE201205006824

PATIENT
  Age: 15 Year
  Sex: Male

DRUGS (1)
  1. ZYPREXA [Suspect]
     Indication: SCHIZOPHRENIA, CATATONIC TYPE
     Dosage: 15 MG, UNK
     Route: 048

REACTIONS (3)
  - GYNAECOMASTIA [None]
  - SUICIDAL IDEATION [None]
  - BLOOD TESTOSTERONE DECREASED [None]
